FAERS Safety Report 7073158-6 (Version None)
Quarter: 2010Q4

REPORT INFORMATION
  Report Type: 
  Country: None (occurrence: None)
  Receive Date: 20101029
  Receipt Date: 20100504
  Transmission Date: 20110411
  Serious: No
  Sender: FDA-Public Use
  Company Number: A0857923A

PATIENT
  Age: 42 Year
  Sex: Male

DRUGS (4)
  1. ADVAIR DISKUS 100/50 [Suspect]
     Indication: ASTHMA
     Dosage: 1BLS THREE TIMES PER DAY
     Route: 055
     Dates: start: 20100504
  2. SINGULAIR [Concomitant]
  3. BACLOFEN [Concomitant]
  4. TRAMADOL [Concomitant]

REACTIONS (2)
  - FEELING JITTERY [None]
  - NERVOUSNESS [None]
